FAERS Safety Report 21284318 (Version 1)
Quarter: 2022Q3

REPORT INFORMATION
  Report Type: Report from Study
  Country: US (occurrence: US)
  Receive Date: 20220902
  Receipt Date: 20220902
  Transmission Date: 20221027
  Serious: Yes (Other)
  Sender: FDA-Public Use
  Company Number: US-BRISTOL-MYERS SQUIBB COMPANY-2022-066246

PATIENT
  Age: 62 Year
  Sex: Male
  Weight: 76.65 kg

DRUGS (2)
  1. POMALYST [Suspect]
     Active Substance: POMALIDOMIDE
     Indication: Plasma cell myeloma
     Route: 048
  2. REVLIMID [Suspect]
     Active Substance: LENALIDOMIDE
     Indication: Product used for unknown indication
     Route: 065

REACTIONS (6)
  - Sinusitis [Unknown]
  - Dyspnoea [Unknown]
  - Platelet count decreased [Unknown]
  - Loss of consciousness [Unknown]
  - Insomnia [Unknown]
  - Immune system disorder [Unknown]
